FAERS Safety Report 9859990 (Version 1)
Quarter: 2014Q1

REPORT INFORMATION
  Report Type: Spontaneous
  Country: US (occurrence: US)
  Receive Date: 20140131
  Receipt Date: 20140131
  Transmission Date: 20141002
  Serious: Yes (Other)
  Sender: FDA-Public Use
  Company Number: US-RB-062948-14

PATIENT
  Sex: Female

DRUGS (2)
  1. SUBOXONE FILM [Suspect]
     Indication: DRUG DEPENDENCE
     Dosage: SUBOXONE FILM
     Route: 060
     Dates: start: 2010, end: 2011
  2. BUPRENORPHINE GENERIC [Suspect]
     Indication: DRUG DEPENDENCE
     Route: 060
     Dates: start: 201110, end: 201208

REACTIONS (4)
  - Maternal exposure during pregnancy [Recovered/Resolved]
  - Vomiting in pregnancy [Recovered/Resolved]
  - Drug ineffective [Recovered/Resolved]
  - Placenta praevia [Recovered/Resolved]
